FAERS Safety Report 7091486-5 (Version None)
Quarter: 2010Q4

REPORT INFORMATION
  Report Type: 
  Country: None (occurrence: None)
  Receive Date: 20101105
  Receipt Date: 20101105
  Transmission Date: 20110411
  Serious: Yes (Other)
  Sender: FDA-Public Use
  Company Number: None

PATIENT
  Age: 32 Year
  Sex: Female
  Weight: 52.1637 kg

DRUGS (3)
  1. OXYCONTIN [Suspect]
     Indication: BACK PAIN
     Dosage: 30 MG 3 PO
     Route: 048
     Dates: start: 20100906, end: 20101105
  2. OXYCONTIN [Suspect]
     Indication: HEADACHE
     Dosage: 30 MG 3 PO
     Route: 048
     Dates: start: 20100906, end: 20101105
  3. OXYCONTIN [Suspect]
     Indication: NECK PAIN
     Dosage: 30 MG 3 PO
     Route: 048
     Dates: start: 20100906, end: 20101105

REACTIONS (6)
  - ABDOMINAL DISTENSION [None]
  - DIARRHOEA [None]
  - FLATULENCE [None]
  - INADEQUATE ANALGESIA [None]
  - NAUSEA [None]
  - PRODUCT FORMULATION ISSUE [None]
